FAERS Safety Report 6902148-6 (Version None)
Quarter: 2010Q3

REPORT INFORMATION
  Report Type: 
  Country: None (occurrence: None)
  Receive Date: 20100803
  Receipt Date: 20070202
  Transmission Date: 20110219
  Serious: Yes (Other)
  Sender: FDA-Public Use
  Company Number: US-MERCK-0702USA00528B1

PATIENT
  Age: 0 Day

DRUGS (1)
  1. MAXALT-MLT [Suspect]
     Indication: MIGRAINE

REACTIONS (1)
  - ABORTION SPONTANEOUS [None]
